FAERS Safety Report 4588295-5 (Version None)
Quarter: 2005Q1

REPORT INFORMATION
  Report Type: 
  Country: None (occurrence: None)
  Receive Date: 20050222
  Receipt Date: 20050210
  Transmission Date: 20050727
  Serious: Yes (Hospitalization)
  Sender: FDA-Public Use
  Company Number: FR-JNJFOC-20050105891

PATIENT
  Age: 7 Year
  Sex: Female

DRUGS (11)
  1. REMICADE [Suspect]
     Route: 042
  2. REMICADE [Suspect]
     Route: 042
  3. REMICADE [Suspect]
     Route: 042
  4. REMICADE [Suspect]
     Route: 042
  5. REMICADE [Suspect]
     Route: 042
  6. REMICADE [Suspect]
     Route: 042
  7. REMICADE [Suspect]
     Route: 042
  8. REMICADE [Suspect]
     Indication: UVEITIS
     Route: 042
  9. CORTANCYL [Concomitant]
     Indication: UVEITIS
     Route: 049
  10. CALCIUM GLUCONATE [Concomitant]
     Route: 049
  11. VEXOL [Concomitant]
     Indication: UVEITIS
     Route: 047

REACTIONS (4)
  - PANCYTOPENIA [None]
  - PHARYNGITIS [None]
  - PYREXIA [None]
  - VISCERAL LEISHMANIASIS [None]
